FAERS Safety Report 6038891-3 (Version None)
Quarter: 2009Q1

REPORT INFORMATION
  Report Type: 
  Country: None (occurrence: None)
  Receive Date: 20090115
  Receipt Date: 20090105
  Transmission Date: 20090719
  Serious: Yes (Death, Other)
  Sender: FDA-Public Use
  Company Number: US-WYE-H07623309

PATIENT
  Age: 70 Year

DRUGS (4)
  1. TYGACIL [Suspect]
     Indication: PNEUMONIA BACTERIAL
     Route: 042
  2. TYGACIL [Suspect]
     Indication: ACINETOBACTER INFECTION
  3. TYGACIL [Suspect]
     Indication: EMPYEMA
  4. PIPERACILLIN AND TAZOBACTAM [Concomitant]
     Indication: LUNG INFECTION PSEUDOMONAL
     Dosage: UNKNOWN DOSE AND INTERVAL

REACTIONS (4)
  - ACINETOBACTER INFECTION [None]
  - DRUG INEFFECTIVE [None]
  - EMPYEMA [None]
  - PNEUMONIA BACTERIAL [None]
